FAERS Safety Report 8182036-0 (Version None)
Quarter: 2012Q1

REPORT INFORMATION
  Report Type: 
  Country: None (occurrence: None)
  Receive Date: 20120302
  Receipt Date: 20120222
  Transmission Date: 20120608
  Serious: Yes (Hospitalization)
  Sender: FDA-Public Use
  Company Number: US-ASTRAZENECA-2009SE26220

PATIENT
  Age: 64 Year
  Sex: Female
  Weight: 127 kg

DRUGS (10)
  1. AVESACARE [Concomitant]
  2. HYDROCHLOROT [Concomitant]
  3. CELEXA [Concomitant]
     Indication: ANTIDEPRESSANT THERAPY
  4. LEXAPRO [Concomitant]
  5. DITROPAN [Concomitant]
  6. LESAPRILL [Concomitant]
     Indication: BLOOD PRESSURE
  7. ZANEX [Concomitant]
     Indication: DEPRESSION
  8. OMEPRAZOLE [Concomitant]
     Indication: DYSPEPSIA
  9. ULTRAM [Concomitant]
     Indication: GOUT
  10. NEXIUM [Suspect]
     Route: 048

REACTIONS (3)
  - GASTRIC ULCER HAEMORRHAGE [None]
  - ULCER [None]
  - DRUG DOSE OMISSION [None]
